FAERS Safety Report 5152996-0 (Version None)
Quarter: 2006Q4

REPORT INFORMATION
  Report Type: 
  Country: None (occurrence: None)
  Receive Date: 20061117
  Receipt Date: 20061017
  Transmission Date: 20070319
  Serious: Yes (Disabling)
  Sender: FDA-Public Use
  Company Number: DK-BAYER-200614896GDS

PATIENT
  Age: 51 Year
  Sex: Male
  Weight: 108 kg

DRUGS (1)
  1. LEVITRA [Suspect]
     Indication: ERECTILE DYSFUNCTION
     Route: 048
     Dates: start: 20051006, end: 20051006

REACTIONS (6)
  - DRUG INEFFECTIVE [None]
  - ERECTILE DYSFUNCTION [None]
  - PENILE PAIN [None]
  - PENIS DEVIATION [None]
  - PENIS DISORDER [None]
  - SKIN WARM [None]
